FAERS Safety Report 6119131-3 (Version None)
Quarter: 2009Q1

REPORT INFORMATION
  Report Type: 
  Country: None (occurrence: None)
  Receive Date: 20090316
  Receipt Date: 20090311
  Transmission Date: 20090719
  Serious: Yes (Death, Other)
  Sender: FDA-Public Use
  Company Number: DE-CELGENEUS-062-C5013-08011348

PATIENT
  Sex: Male

DRUGS (7)
  1. CC-5013 [Suspect]
     Route: 048
     Dates: start: 20070518, end: 20070605
  2. NOVODIGAL [Concomitant]
     Route: 048
     Dates: start: 20060601, end: 20071213
  3. PANTOZOL [Concomitant]
     Indication: PROPHYLAXIS
     Route: 048
     Dates: start: 20061001, end: 20071213
  4. NEXIUM [Concomitant]
     Indication: PROPHYLAXIS AGAINST GASTROINTESTINAL ULCER
     Route: 048
     Dates: start: 20060701, end: 20071213
  5. EXJADE [Concomitant]
     Indication: IRON OVERLOAD
     Route: 048
     Dates: start: 20070914, end: 20071213
  6. METOHEXAL [Concomitant]
     Route: 048
     Dates: start: 20060601, end: 20071213
  7. METOHEXAL [Concomitant]
     Indication: ATRIAL FIBRILLATION

REACTIONS (6)
  - ACUTE MYELOID LEUKAEMIA [None]
  - ATRIAL FIBRILLATION [None]
  - ATRIOVENTRICULAR BLOCK COMPLETE [None]
  - ORAL CANDIDIASIS [None]
  - PNEUMONIA [None]
  - URINARY TRACT INFECTION [None]
